FAERS Safety Report 17778416 (Version 1)
Quarter: 2020Q2

REPORT INFORMATION
  Report Type: Report from Study
  Country: None (occurrence: US)
  Receive Date: 20200514
  Receipt Date: 20200514
  Transmission Date: 20200714
  Serious: Yes (Other)
  Sender: FDA-Public Use
  Company Number: US-ABBVIE-20K-163-3397651-00

PATIENT
  Sex: Female

DRUGS (3)
  1. RITUXIMAB. [Concomitant]
     Active Substance: RITUXIMAB
     Indication: PRODUCT USED FOR UNKNOWN INDICATION
  2. VENCLEXTA [Suspect]
     Active Substance: VENETOCLAX
     Indication: B-CELL SMALL LYMPHOCYTIC LYMPHOMA
     Route: 048
     Dates: start: 20200309, end: 2020
  3. VENCLEXTA [Suspect]
     Active Substance: VENETOCLAX
     Route: 048
     Dates: start: 2020

REACTIONS (10)
  - Transfusion [Unknown]
  - Melanocytic naevus [Unknown]
  - Haemoglobin abnormal [Recovering/Resolving]
  - Fatigue [Unknown]
  - Melaena [Unknown]
  - Chronic lymphocytic leukaemia [Recovering/Resolving]
  - Neutropenia [Unknown]
  - Gastrointestinal arteriovenous malformation [Unknown]
  - Anaemia [Recovering/Resolving]
  - Reticulocyte count decreased [Unknown]

NARRATIVE: CASE EVENT DATE: 2020
